FAERS Safety Report 9370330 (Version 1)
Quarter: 2013Q2

REPORT INFORMATION
  Report Type: Spontaneous
  Country: US (occurrence: US)
  Receive Date: 20130626
  Receipt Date: 20130626
  Transmission Date: 20140414
  Serious: Yes (Hospitalization)
  Sender: FDA-Public Use
  Company Number: US-BAYER-2013-078089

PATIENT
  Age: 31 Year
  Sex: Female

DRUGS (18)
  1. YASMIN [Suspect]
  2. MORPHINE [Concomitant]
     Dosage: UNK
     Dates: start: 20060410
  3. PHENERGAN [Concomitant]
     Dosage: UNK
     Dates: start: 20060410
  4. ACETAMINOPHEN [Concomitant]
     Dosage: UNK
     Dates: start: 20060409
  5. ASPIRIN [Concomitant]
     Dosage: UNK
     Dates: start: 20060409
  6. METOPROLOL [Concomitant]
     Dosage: UNK
     Dates: start: 20060409
  7. ATIVAN [Concomitant]
     Dosage: UNK
     Dates: start: 20060409
  8. NITROGLYCERIN [Concomitant]
     Dosage: UNK
     Dates: start: 20060409
  9. HEP-LOCK [Concomitant]
     Dosage: UNK
     Dates: start: 20060409
  10. PROZAC [Concomitant]
  11. LUNESTA [Concomitant]
  12. KLONOPIN [Concomitant]
  13. PAXIL [Concomitant]
  14. INDOMETHACIN [Concomitant]
  15. DILAUDID [Concomitant]
     Indication: PAIN
  16. ZANTAC [Concomitant]
  17. LOPRESSOR [Concomitant]
  18. NITRO-DUR [Concomitant]

REACTIONS (2)
  - Pulmonary embolism [Recovered/Resolved]
  - Off label use [None]
